FAERS Safety Report 10917217 (Version 1)
Quarter: 2015Q1

REPORT INFORMATION
  Report Type: Spontaneous
  Country: FR (occurrence: FR)
  Receive Date: 20150316
  Receipt Date: 20150316
  Transmission Date: 20150721
  Serious: Yes (Hospitalization)
  Sender: FDA-Public Use
  Company Number: FR-JNJFOC-20150306291

PATIENT
  Age: 68 Year
  Sex: Male
  Weight: 80 kg

DRUGS (5)
  1. TENORMIN [Concomitant]
     Active Substance: ATENOLOL
     Indication: VENTRICULAR ARRHYTHMIA
     Route: 065
  2. XARELTO [Suspect]
     Active Substance: RIVAROXABAN
     Indication: VENTRICULAR ARRHYTHMIA
     Route: 048
     Dates: end: 201409
  3. FLECAINE [Concomitant]
     Active Substance: FLECAINIDE
     Route: 065
  4. FLUDEX [Suspect]
     Active Substance: INDAPAMIDE
     Indication: HYPERTENSION
     Route: 065
     Dates: end: 20140823
  5. AMLODIPINE W/ OLMESARTAN [Suspect]
     Active Substance: AMLODIPINE MALEATE\OLMESARTAN MEDOXOMIL
     Indication: HYPERTENSION
     Route: 065
     Dates: end: 20140828

REACTIONS (4)
  - Dehydration [Recovered/Resolved]
  - Metabolic acidosis [Recovered/Resolved]
  - Hypotension [Recovered/Resolved]
  - Acute kidney injury [Recovered/Resolved]

NARRATIVE: CASE EVENT DATE: 201408
